FAERS Safety Report 4287995-4 (Version None)
Quarter: 2004Q1

REPORT INFORMATION
  Report Type: 
  Country: None (occurrence: None)
  Receive Date: 20040209
  Receipt Date: 20031112
  Transmission Date: 20041129
  Serious: No
  Sender: FDA-Public Use
  Company Number: US-GLAXOSMITHKLINE-A0439410A

PATIENT
  Age: 43 Year
  Sex: Female

DRUGS (3)
  1. PAXIL [Suspect]
     Indication: ANXIETY
     Dosage: 12.5MG PER DAY
     Route: 048
     Dates: start: 20031104
  2. PAXIL [Suspect]
     Dosage: 20MG PER DAY
     Route: 048
     Dates: start: 20020101, end: 20030401
  3. XANAX [Suspect]

REACTIONS (8)
  - ASTHENIA [None]
  - BURNING SENSATION [None]
  - DRY MOUTH [None]
  - EMOTIONAL DISTRESS [None]
  - FEELING ABNORMAL [None]
  - HYPERHIDROSIS [None]
  - LIBIDO DECREASED [None]
  - TREMOR [None]
